FAERS Safety Report 5810923-4 (Version None)
Quarter: 2008Q3

REPORT INFORMATION
  Report Type: 
  Country: None (occurrence: None)
  Receive Date: 20080716
  Receipt Date: 20080707
  Transmission Date: 20090109
  Serious: Yes (Hospitalization)
  Sender: FDA-Public Use
  Company Number: PHEH2008US06019

PATIENT
  Sex: Female
  Weight: 197 kg

DRUGS (9)
  1. TEKTURNA [Suspect]
     Indication: HYPERTENSION
     Dosage: 150 MG, QD
     Dates: start: 20080314
  2. GLYBURIDE [Concomitant]
     Dosage: 25 UNK, UNK
  3. CARTIA XT [Concomitant]
     Dosage: 360 MG, QD
  4. TORSEMIDE [Concomitant]
     Dosage: 20 MG, QD
  5. GLUCOSAMINE SULFATE W/CHONDROITIN [Concomitant]
     Dosage: UNK, UNK
  6. MICARDIS [Concomitant]
     Dosage: 80 MG, QD
  7. CLONIDINE [Concomitant]
     Dosage: 1 MG, BID
  8. DARVOCET-N 100 [Concomitant]
     Dosage: UNK, PRN
  9. ALEVE [Concomitant]
     Dosage: UNK, ^RARE^

REACTIONS (2)
  - CARDIAC FAILURE CONGESTIVE [None]
  - RENAL FAILURE [None]
